FAERS Safety Report 9744117 (Version 1)
Quarter: 2013Q4

REPORT INFORMATION
  Report Type: Spontaneous
  Country: FR (occurrence: FR)
  Receive Date: 20131210
  Receipt Date: 20131210
  Transmission Date: 20140711
  Serious: Yes (Hospitalization)
  Sender: FDA-Public Use
  Company Number: FR-PFIZER INC-2013351599

PATIENT
  Age: 84 Year
  Sex: Male

DRUGS (9)
  1. RAMIPRIL [Suspect]
     Indication: CARDIAC FAILURE
     Dosage: 5 MG, DAILY
     Route: 048
  2. BISOPROLOL FUMARATE [Suspect]
     Indication: CARDIAC FAILURE
     Dosage: 1.25 MG, DAILY
     Route: 048
  3. FUROSEMIDE [Suspect]
     Indication: CARDIAC FAILURE
     Dosage: 60 MG, THRICE DAILY
     Route: 048
  4. TEMESTA [Suspect]
     Indication: ANXIETY
     Dosage: 1 DF, DAILY
     Route: 048
  5. NAFTIDROFURYL OXALATE [Suspect]
     Dosage: 1 DF, DAILY
     Route: 048
  6. STILNOX [Suspect]
     Indication: INSOMNIA
     Dosage: 2 DF, DAILY
     Route: 048
  7. PRAVASTATIN [Concomitant]
  8. COUMADIN [Concomitant]
  9. HIRUCREME [Concomitant]

REACTIONS (1)
  - Fall [Unknown]
